FAERS Safety Report 5280396-1 (Version None)
Quarter: 2007Q1

REPORT INFORMATION
  Report Type: 
  Country: None (occurrence: None)
  Receive Date: 20061229
  Receipt Date: 20060803
  Transmission Date: 20070707
  Serious: Yes (Other)
  Sender: FDA-Public Use
  Company Number: 2006UW15540

PATIENT
  Age: 50 Year
  Sex: Female
  Weight: 108.86 kg

DRUGS (9)
  1. CRESTOR [Suspect]
     Indication: BLOOD CHOLESTEROL INCREASED
     Dosage: 10 MG PO
     Route: 048
     Dates: start: 20060731
  2. ALTACE [Concomitant]
  3. TRICOR [Concomitant]
  4. PLAVIX [Concomitant]
  5. ZETIA [Concomitant]
  6. GLYBURIDE AND METFORMIN HCL [Concomitant]
  7. NEXIUM ORAL [Concomitant]
  8. ASPIRIN [Concomitant]
  9. VITAMINS [Concomitant]

REACTIONS (2)
  - CHEST PAIN [None]
  - ERUCTATION [None]
